FAERS Safety Report 16134655 (Version 3)
Quarter: 2019Q3

REPORT INFORMATION
  Report Type: Report from Study
  Country: US (occurrence: US)
  Receive Date: 20190331
  Receipt Date: 20190814
  Transmission Date: 20191004
  Serious: Yes (Other)
  Sender: FDA-Public Use
  Company Number: PHEH2019US013279

PATIENT
  Age: 37 Year
  Sex: Female

DRUGS (1)
  1. GILENYA [Suspect]
     Active Substance: FINGOLIMOD HYDROCHLORIDE
     Indication: MULTIPLE SCLEROSIS
     Dosage: 0.5 MG, QD
     Route: 048
     Dates: start: 20190404

REACTIONS (8)
  - Gait inability [Recovering/Resolving]
  - Hemiparesis [Unknown]
  - Multiple sclerosis relapse [Recovering/Resolving]
  - Fatigue [Not Recovered/Not Resolved]
  - Blindness unilateral [Recovering/Resolving]
  - Depression [Not Recovered/Not Resolved]
  - Stress [Unknown]
  - Back pain [Unknown]

NARRATIVE: CASE EVENT DATE: 20190404
